FAERS Safety Report 8830679 (Version 2)
Quarter: 2013Q2

REPORT INFORMATION
  Report Type: Spontaneous
  Country: US (occurrence: US)
  Receive Date: 20121009
  Receipt Date: 20130625
  Transmission Date: 20140414
  Serious: Yes (Death, Hospitalization, Other)
  Sender: FDA-Public Use
  Company Number: US-UCBSA-068234

PATIENT
  Age: 90 Year
  Sex: Female

DRUGS (23)
  1. ZAROXOLYN [Suspect]
     Indication: FLUID RETENTION
     Dosage: 5 MG: 30 MINUTES PRIOR TO MORNING FUROSEMIDE THRICE PER WEEK ON MONDAY, WEDNESDAY AND FRIDAY
     Route: 048
  2. REVATIO [Suspect]
     Route: 048
  3. TYLENOL [Concomitant]
     Indication: PYREXIA
     Dosage: 500 MG 1-2 TABLETS
     Route: 048
  4. TYLENOL [Concomitant]
     Indication: PAIN
     Dosage: 500 MG 1-2 TABLETS
     Route: 048
  5. ZYLOPRIM [Concomitant]
     Dosage: 300 MG TABLET ONE -HALF TABLET
     Route: 048
  6. CITRACAL + D [Concomitant]
     Dosage: 315-200 MG-UNIT-1 TABLET
     Route: 048
  7. COUMADIN [Concomitant]
     Dosage: 2 MG TABLET 1.5-2 TABS
     Route: 048
  8. VITAMIN B12 [Concomitant]
     Route: 048
  9. APRESOLINE [Concomitant]
     Route: 048
  10. DILAUDID [Concomitant]
     Indication: ANXIETY
     Dosage: 0.5MG ONCE EVERY 6 HOURS( AT 0200,0800,1400AND 2000), 0.5 -1 MG EVERY TWO HOURS
     Route: 048
  11. DILAUDID [Concomitant]
     Indication: DYSPNOEA
     Dosage: 0.5MG ONCE EVERY 6 HOURS( AT 0200,0800,1400AND 2000), 0.5 -1 MG EVERY TWO HOURS
     Route: 048
  12. DUONEB [Concomitant]
     Dosage: 0.5 MG-3 MG(2.5 MG BASE)/3 ML SOLUTION 3 ML BY INHALATION
  13. KLOR CON [Concomitant]
     Dosage: 10 10 MEQ TABLET SUSTAINED RELEASE 2 TABLETS
     Route: 048
  14. KLOR CON [Concomitant]
  15. LASIX [Concomitant]
     Dosage: 40 MG TABLET 2.5 TABLETS TWICE DAILY
     Route: 048
  16. LASIX [Concomitant]
  17. LEVOTHROID [Concomitant]
     Route: 048
  18. LOPRESSOR [Concomitant]
     Route: 048
  19. MIRALAX [Concomitant]
     Indication: CONSTIPATION
     Dosage: 17 GRAM/DOSE POWDER
     Route: 048
  20. REMERON [Concomitant]
     Dosage: EVERY BEDTIME
     Route: 048
  21. MULTIVITAMIN [Concomitant]
     Dosage: 1 TABLET
     Route: 048
  22. MYCOSTATIN [Concomitant]
     Indication: RASH
     Dosage: 100,000 UNIT/G POWDER AS NEEDED
     Route: 061
  23. SENOKOT S [Concomitant]
     Indication: CONSTIPATION
     Dosage: 8.6-50 MG 2 TABLETS EVERY BEDTIME
     Route: 048

REACTIONS (3)
  - Cardiac failure [Fatal]
  - Renal failure chronic [Unknown]
  - Pulmonary hypertension [Unknown]
